FAERS Safety Report 4335241-5 (Version None)
Quarter: 2004Q2

REPORT INFORMATION
  Report Type: 
  Country: None (occurrence: None)
  Receive Date: 20040408
  Receipt Date: 20040310
  Transmission Date: 20050107
  Serious: Yes (Disabling)
  Sender: FDA-Public Use
  Company Number: US-MERCK-0403USA01159

PATIENT
  Age: 48 Year
  Sex: Male
  Weight: 85 kg

DRUGS (4)
  1. TENORETIC [Concomitant]
     Indication: HYPERTENSION
     Route: 048
  2. ALLEGRA [Concomitant]
     Indication: CHRONIC SINUSITIS
     Route: 048
  3. SINGULAIR [Suspect]
     Indication: HYPERSENSITIVITY
     Route: 048
     Dates: start: 20031201
  4. PRILOSEC [Concomitant]
     Indication: GASTROOESOPHAGEAL REFLUX DISEASE
     Route: 048

REACTIONS (4)
  - MUSCLE CRAMP [None]
  - MUSCLE SPASMS [None]
  - MUSCLE STRAIN [None]
  - TENDON INJURY [None]
